FAERS Safety Report 5151300-1 (Version None)
Quarter: 2006Q4

REPORT INFORMATION
  Report Type: 
  Country: None (occurrence: None)
  Receive Date: 20061115
  Receipt Date: 20060822
  Transmission Date: 20070319
  Serious: Yes (Death)
  Sender: FDA-Public Use
  Company Number: HK-GLAXOSMITHKLINE-A0617548A

PATIENT
  Age: 65 Year
  Sex: Female
  Weight: 58.1 kg

DRUGS (13)
  1. ROSIGLITAZONE [Suspect]
     Dosage: 4MG PER DAY
     Route: 048
     Dates: start: 20060804
  2. METFORMIN [Concomitant]
     Dosage: 250MG TWICE PER DAY
     Route: 048
     Dates: start: 20060804
  3. METFORMIN [Concomitant]
     Dosage: 500MG TWICE PER DAY
     Route: 048
     Dates: start: 20041206, end: 20060803
  4. DIAMICRON [Concomitant]
     Dosage: 40MG PER DAY
     Route: 048
     Dates: start: 20051207, end: 20060803
  5. ZOCOR [Concomitant]
     Dosage: 10MG PER DAY
     Route: 048
     Dates: start: 20051207
  6. ZESTRIL [Concomitant]
     Indication: HYPERTENSION
     Dosage: 10MG SINGLE DOSE
     Route: 048
     Dates: start: 20051207
  7. BETALOC [Concomitant]
     Indication: HYPERTENSION
     Dosage: 75MG TWICE PER DAY
     Route: 048
     Dates: start: 20050309
  8. ASPIRIN [Concomitant]
     Indication: THROMBOSIS PROPHYLAXIS
     Route: 048
     Dates: start: 20060802, end: 20060802
  9. ASPIRIN [Concomitant]
     Dosage: 160MG PER DAY
     Route: 048
     Dates: start: 20060803
  10. PLAVIX [Concomitant]
     Route: 048
     Dates: start: 20060801, end: 20060801
  11. PLAVIX [Concomitant]
     Dosage: 75MG PER DAY
     Route: 048
     Dates: start: 20060802
  12. FLUIMUCIL [Concomitant]
     Indication: ILL-DEFINED DISORDER
     Dosage: 600MG TWICE PER DAY
     Route: 048
     Dates: start: 20060731, end: 20060804
  13. FAMOTIDINE [Concomitant]
     Indication: PROPHYLAXIS
     Dosage: 40MG TWICE PER DAY
     Route: 048
     Dates: start: 20060802

REACTIONS (1)
  - SUDDEN CARDIAC DEATH [None]
